FAERS Safety Report 20767882 (Version 1)
Quarter: 2022Q2

REPORT INFORMATION
  Report Type: Report from Study
  Country: JP (occurrence: JP)
  Receive Date: 20220429
  Receipt Date: 20220429
  Transmission Date: 20220720
  Serious: Yes (Death, Other)
  Sender: FDA-Public Use
  Company Number: JP-SUN PHARMACEUTICAL INDUSTRIES LTD-2022RR-334906

PATIENT
  Age: 53 Year
  Sex: Female

DRUGS (4)
  1. MELPHALAN [Suspect]
     Active Substance: MELPHALAN
     Indication: Chloroma
     Dosage: UNK
     Route: 065
  2. SULFAMETHOXAZOLE\TRIMETHOPRIM [Suspect]
     Active Substance: SULFAMETHOXAZOLE\TRIMETHOPRIM
     Indication: Chloroma
     Dosage: UNK
     Route: 065
  3. SULFAMETHOXAZOLE\TRIMETHOPRIM [Suspect]
     Active Substance: SULFAMETHOXAZOLE\TRIMETHOPRIM
     Indication: Antifungal prophylaxis
  4. BUSULFAN [Suspect]
     Active Substance: BUSULFAN
     Indication: Chloroma
     Dosage: UNK
     Route: 065

REACTIONS (4)
  - Disseminated toxoplasmosis [Fatal]
  - Condition aggravated [Fatal]
  - Renal disorder [Unknown]
  - Disease recurrence [Unknown]
